FAERS Safety Report 14955549 (Version 1)
Quarter: 2018Q2

REPORT INFORMATION
  Report Type: Spontaneous
  Country: US (occurrence: US)
  Receive Date: 20180531
  Receipt Date: 20180531
  Transmission Date: 20180711
  Serious: No
  Sender: FDA-Public Use
  Company Number: US-SA-2018SA145615

PATIENT
  Age: 49 Year
  Sex: Female

DRUGS (3)
  1. TOUJEO [Suspect]
     Active Substance: INSULIN GLARGINE
     Indication: TYPE 2 DIABETES MELLITUS
     Dosage: 65 U, QD
     Route: 051
     Dates: start: 201801
  2. TOUJEO [Suspect]
     Active Substance: INSULIN GLARGINE
     Dosage: 95 UNK
     Route: 051
     Dates: start: 2018
  3. LANTUS [Concomitant]
     Active Substance: INSULIN GLARGINE
     Dosage: UNK
     Route: 051
     Dates: start: 201711, end: 201801

REACTIONS (1)
  - Blood glucose abnormal [Recovered/Resolved]
